FAERS Safety Report 9228861 (Version 1)
Quarter: 2013Q2

REPORT INFORMATION
  Report Type: Spontaneous
  Country: US (occurrence: US)
  Receive Date: 20130412
  Receipt Date: 20130412
  Transmission Date: 20140414
  Serious: No
  Sender: FDA-Public Use
  Company Number: US-PFIZER INC-2013112012

PATIENT
  Age: 60 Year
  Sex: Male
  Weight: 84.81 kg

DRUGS (4)
  1. VIAGRA [Suspect]
     Indication: ERECTILE DYSFUNCTION
     Dosage: 100 MG, AS NEEDED
     Route: 048
     Dates: start: 2008
  2. FLECAINIDE [Concomitant]
     Dosage: UNK
  3. LIVALO [Concomitant]
     Dosage: UNK
  4. TESTIM [Concomitant]
     Dosage: UNK
     Route: 061

REACTIONS (3)
  - Cyanopsia [Unknown]
  - Migraine [Unknown]
  - Drug ineffective [Unknown]
